FAERS Safety Report 8505899-5 (Version None)
Quarter: 2012Q3

REPORT INFORMATION
  Report Type: 
  Country: None (occurrence: None)
  Receive Date: 20120712
  Receipt Date: 20080922
  Transmission Date: 20120928
  Serious: Yes (Other)
  Sender: FDA-Public Use
  Company Number: CO-PFIZER INC-2012165148

PATIENT
  Age: 61 Year
  Sex: Male

DRUGS (8)
  1. ISOSORBIDE DINITRATE [Concomitant]
     Dosage: 10 MG EVERY 12 HOURS
     Dates: start: 20100517
  2. LIPITOR [Suspect]
     Indication: DYSLIPIDAEMIA
     Dosage: 10 MG EVERY 24 HOURS
     Dates: start: 20080917
  3. AMLODIPINE [Concomitant]
     Dosage: 5 MG EVERY 24 HOURS
     Dates: start: 20100517
  4. ASPIRIN [Concomitant]
     Dosage: 100 MG EVERY 24 HOURS
     Dates: start: 20100517
  5. OLMESARTAN MEDOXOMIL AND HYDROCHLOROTHIZIDE [Suspect]
     Indication: HYPERTENSION
     Dosage: [OLMESARTAN MEDOXOMIL 20 MG]/ [HYDROCHLOROTHIAZIDE 12.5 MG] EVERY 24 HOURS
     Dates: start: 20080917
  6. LOSARTAN [Concomitant]
     Dosage: 50 MG EVERY 12 HOURS
     Dates: start: 20100517
  7. LOSARTAN [Concomitant]
     Dosage: 50 MG EVERY 24 HOURS
     Dates: start: 20090829
  8. HYDROCHLOROTHIAZIDE [Concomitant]
     Dosage: 25 MG EVERY 24 HOURS
     Dates: start: 20100517

REACTIONS (3)
  - HYPERTENSIVE CRISIS [None]
  - PAIN IN EXTREMITY [None]
  - CHEST PAIN [None]
